FAERS Safety Report 7070950-9 (Version None)
Quarter: 2010Q4

REPORT INFORMATION
  Report Type: 
  Country: None (occurrence: None)
  Receive Date: 20101029
  Receipt Date: 20101025
  Transmission Date: 20110411
  Serious: Yes (Death)
  Sender: FDA-Public Use
  Company Number: PHHY2010CA59835

PATIENT
  Sex: Female

DRUGS (6)
  1. CLOZARIL [Suspect]
     Indication: SCHIZOAFFECTIVE DISORDER
     Dosage: 75 MG AT DINNER + 300 MG QHS PER OS
     Dates: start: 20040127
  2. VENLAFAXINE [Concomitant]
     Dosage: 225 MG DAILY
  3. LORAZEPAM [Concomitant]
     Dosage: 0.5 MG, BID
  4. ASPIRIN [Concomitant]
     Dosage: 80 MG DAILY
  5. COLACE [Concomitant]
     Dosage: 200 MG, QHS
  6. OLANZAPINE [Concomitant]
     Dosage: 2.5 MG, BID

REACTIONS (1)
  - PULMONARY EMBOLISM [None]
